FAERS Safety Report 15517777 (Version 1)
Quarter: 2018Q4

REPORT INFORMATION
  Report Type: Spontaneous
  Country: US (occurrence: US)
  Receive Date: 20181011
  Receipt Date: 20181011
  Transmission Date: 20190205
  Serious: No
  Sender: FDA-Public Use
  Company Number: None

PATIENT
  Age: 69 Year
  Sex: Female

DRUGS (1)
  1. IBRANCE [Suspect]
     Active Substance: PALBOCICLIB
     Dates: start: 20180912, end: 20181010

REACTIONS (3)
  - Oral mucosal blistering [None]
  - Pruritus generalised [None]
  - Therapy non-responder [None]

NARRATIVE: CASE EVENT DATE: 20180927
